FAERS Safety Report 13159663 (Version 1)
Quarter: 2017Q1

REPORT INFORMATION
  Report Type: Spontaneous
  Country: US (occurrence: US)
  Receive Date: 20170127
  Receipt Date: 20170127
  Transmission Date: 20170428
  Serious: Yes (Hospitalization, Other)
  Sender: FDA-Public Use
  Company Number: US-LUNDBECK-DKLU2025484

PATIENT
  Sex: Female

DRUGS (1)
  1. ONFI [Suspect]
     Active Substance: CLOBAZAM
     Indication: SEIZURE
     Route: 048
     Dates: start: 20150925

REACTIONS (7)
  - Developmental regression [Unknown]
  - Drooling [Unknown]
  - Salivary gland mass [Unknown]
  - Seizure [Unknown]
  - Gait disturbance [Unknown]
  - Gastrostomy [Unknown]
  - Pneumonia [Unknown]
